FAERS Safety Report 9837653 (Version 1)
Quarter: 2014Q1

REPORT INFORMATION
  Report Type: Spontaneous
  Country: US (occurrence: None)
  Receive Date: 20140117
  Receipt Date: 20140117
  Transmission Date: 20141002
  Serious: Yes (Other)
  Sender: FDA-Public Use
  Company Number: None

PATIENT
  Age: 51 Year
  Sex: Female

DRUGS (2)
  1. RIBAPAK [Suspect]
     Indication: HEPATITIS C
     Route: 048
     Dates: start: 20131107, end: 20131219
  2. INCIVEK 375MG VERTEX [Suspect]
     Indication: HEPATITIS C
     Dosage: INCIVEK 375  2 DAILY PO
     Route: 048
     Dates: start: 20131107, end: 20131219

REACTIONS (4)
  - Pruritus generalised [None]
  - Ear pain [None]
  - Pyrexia [None]
  - Tremor [None]
